FAERS Safety Report 8849314 (Version 2)
Quarter: 2013Q2

REPORT INFORMATION
  Report Type: Report from Study
  Country: MX (occurrence: MX)
  Receive Date: 20121017
  Receipt Date: 20130510
  Transmission Date: 20140414
  Serious: Yes (Death)
  Sender: FDA-Public Use
  Company Number: PHHY2012MX088886

PATIENT
  Age: 87 Year
  Sex: Female

DRUGS (1)
  1. STALEVO [Suspect]
     Dosage: 1 TABLET (150/37.5/200 MG) DAILY
     Dates: start: 201102

REACTIONS (1)
  - Death [Fatal]
